FAERS Safety Report 16442986 (Version 3)
Quarter: 2019Q2

REPORT INFORMATION
  Report Type: Spontaneous
  Country: DE (occurrence: DE)
  Receive Date: 20190617
  Receipt Date: 20190626
  Transmission Date: 20190711
  Serious: Yes (Life-Threatening, Hospitalization, Other)
  Sender: FDA-Public Use
  Company Number: PHHY2019DE138170

PATIENT
  Age: 41 Year
  Sex: Male

DRUGS (3)
  1. PHENPROCOUMON [Suspect]
     Active Substance: PHENPROCOUMON
     Indication: MYOCARDIAL ISCHAEMIA
     Route: 065
  2. ACETYLSALICYLIC ACID [Suspect]
     Active Substance: ASPIRIN
     Indication: TOOTHACHE
     Route: 065
  3. METAMIZOLE [Suspect]
     Active Substance: METAMIZOLE
     Indication: TOOTHACHE
     Dosage: UNK
     Route: 065

REACTIONS (7)
  - Overdose [Recovering/Resolving]
  - Pharyngeal haematoma [Recovering/Resolving]
  - Post procedural haematoma [Recovering/Resolving]
  - Tongue haematoma [Recovering/Resolving]
  - Drug level above therapeutic [Unknown]
  - Haemorrhage [Recovering/Resolving]
  - Coagulopathy [Recovering/Resolving]
